FAERS Safety Report 8862953 (Version 2)
Quarter: 2012Q4

REPORT INFORMATION
  Report Type: 
  Country: IT (occurrence: IT)
  Receive Date: 20121026
  Receipt Date: 20121115
  Transmission Date: 20130627
  Serious: Yes (Death, Hospitalization)
  Sender: FDA-Public Use
  Company Number: IT-BRISTOL-MYERS SQUIBB COMPANY-17037169

PATIENT
  Age: 84 Year
  Sex: Female

DRUGS (1)
  1. COUMADIN TABS 5 MG [Suspect]
     Indication: ATRIAL FIBRILLATION
     Dosage: Inter on 2Oct12
     Route: 048
     Dates: start: 20100101

REACTIONS (3)
  - Shock haemorrhagic [Fatal]
  - Renal failure acute [Unknown]
  - Hyperkalaemia [Unknown]
